FAERS Safety Report 4876402-6 (Version None)
Quarter: 2005Q4

REPORT INFORMATION
  Report Type: 
  Country: None (occurrence: None)
  Receive Date: 20051206
  Receipt Date: 20051017
  Transmission Date: 20060501
  Serious: No
  Sender: FDA-Public Use
  Company Number: USA0510111114

PATIENT
  Age: 45 Year
  Sex: Female

DRUGS (3)
  1. CYMBALTA [Suspect]
     Indication: FIBROMYALGIA
     Dosage: 90 MG
     Dates: end: 20051007
  2. SEROQUEL [Concomitant]
  3. TOPAMAX [Concomitant]

REACTIONS (5)
  - BLOOD PRESSURE FLUCTUATION [None]
  - DRUG INTERACTION [None]
  - EXPRESSIVE LANGUAGE DISORDER [None]
  - OCULAR HYPERAEMIA [None]
  - URTICARIA [None]
